FAERS Safety Report 4343567-4 (Version None)
Quarter: 2004Q2

REPORT INFORMATION
  Report Type: 
  Country: None (occurrence: None)
  Receive Date: 20040419
  Receipt Date: 20040406
  Transmission Date: 20050107
  Serious: Yes (Death)
  Sender: FDA-Public Use
  Company Number: 163-20785-04020620

PATIENT
  Age: 85 Year
  Sex: Female

DRUGS (5)
  1. THALOMID [Suspect]
     Indication: MULTIPLE MYELOMA
     Dosage: 50 MG, DAILY,  ORAL
     Route: 048
     Dates: start: 20031024
  2. ZOMETA [Concomitant]
  3. PROCRIT (ERYTHROPOIETIN) [Concomitant]
  4. DECADRON [Concomitant]
  5. MEGACE [Concomitant]

REACTIONS (10)
  - AMNESIA [None]
  - ARRHYTHMIA [None]
  - BALANCE DISORDER [None]
  - DEAFNESS [None]
  - DIPLOPIA [None]
  - EYE DISORDER [None]
  - MALIGNANT NEOPLASM PROGRESSION [None]
  - MULTIPLE MYELOMA [None]
  - SEDATION [None]
  - WEIGHT DECREASED [None]
